FAERS Safety Report 4304019-0 (Version None)
Quarter: 2004Q1

REPORT INFORMATION
  Report Type: 
  Country: None (occurrence: None)
  Receive Date: 20040223
  Receipt Date: 20040121
  Transmission Date: 20041129
  Serious: No
  Sender: FDA-Public Use
  Company Number: PHEH2004US01069

PATIENT
  Sex: Female

DRUGS (2)
  1. ZELNORM [Suspect]
     Indication: CONSTIPATION
     Dosage: 3 MG, QD, ORAL; 6 MG, BID, ORAL
     Route: 048
     Dates: start: 20031201, end: 20040101
  2. ZELNORM [Suspect]
     Indication: CONSTIPATION
     Dosage: 3 MG, QD, ORAL; 6 MG, BID, ORAL
     Route: 048
     Dates: start: 20040101

REACTIONS (2)
  - FATIGUE [None]
  - SOMNOLENCE [None]
